FAERS Safety Report 6312118-7 (Version None)
Quarter: 2009Q3

REPORT INFORMATION
  Report Type: 
  Country: None (occurrence: None)
  Receive Date: 20090813
  Receipt Date: 20090813
  Transmission Date: 20100115
  Serious: Yes (Hospitalization)
  Sender: FDA-Public Use
  Company Number: None

PATIENT
  Age: 53 Year
  Sex: Female
  Weight: 51.9369 kg

DRUGS (10)
  1. BEVACIZUMAB 10MG/KG [Suspect]
     Indication: PANCREATIC CARCINOMA METASTATIC
     Dosage: 10MG/KGIV, D1+15 28DAY
     Route: 042
     Dates: start: 20080312
  2. GEMCITABINE [Suspect]
     Indication: PANCREATIC CARCINOMA METASTATIC
     Dosage: IV DAYS 1+15 CYCLE
     Route: 042
     Dates: start: 20080312
  3. FLUOROURACIL [Suspect]
     Indication: PANCREATIC CARCINOMA METASTATIC
     Dosage: IV DAYS 1+15 CYCLE
     Route: 042
     Dates: start: 20080312
  4. RESTORIL [Concomitant]
  5. MIRALAX [Concomitant]
  6. TYLENOL (CAPLET) [Concomitant]
  7. NORVASC [Concomitant]
  8. OMEPRAZOLE [Concomitant]
  9. ZOFRAN [Concomitant]
  10. EMLA [Concomitant]

REACTIONS (1)
  - CONSTIPATION [None]
